FAERS Safety Report 24172963 (Version 1)
Quarter: 2024Q3

REPORT INFORMATION
  Report Type: Spontaneous
  Country: US (occurrence: US)
  Receive Date: 20240805
  Receipt Date: 20240805
  Transmission Date: 20241016
  Serious: No
  Sender: AMGEN
  Company Number: US-AMGEN-USASP2024152668

PATIENT
  Sex: Female

DRUGS (1)
  1. MVASI [Suspect]
     Active Substance: BEVACIZUMAB-AWWB
     Indication: Colon cancer
     Dosage: DOSE ORDERED MVASI 372 MG, DOSE REQUESTED MVASI 400 MG X 1
     Route: 065

REACTIONS (1)
  - Laboratory test abnormal [Unknown]
